FAERS Safety Report 14656390 (Version 4)
Quarter: 2018Q3

REPORT INFORMATION
  Report Type: Report from Study
  Country: US (occurrence: US)
  Receive Date: 20180319
  Receipt Date: 20180713
  Transmission Date: 20181010
  Serious: Yes (Hospitalization)
  Sender: FDA-Public Use
  Company Number: US-EISAI MEDICAL RESEARCH-EC-2018-037086

PATIENT
  Age: 68 Year
  Sex: Male
  Weight: 72.9 kg

DRUGS (18)
  1. LENVATINIB [Suspect]
     Active Substance: LENVATINIB
     Indication: RENAL CANCER
     Dosage: BLINDED DOSAGE
     Route: 048
     Dates: start: 20180301, end: 201803
  2. EVEROLIMUS. [Suspect]
     Active Substance: EVEROLIMUS
     Route: 048
     Dates: start: 2018, end: 20180423
  3. HUMALOG [Concomitant]
     Active Substance: INSULIN LISPRO
  4. CALCITROL [Concomitant]
     Active Substance: CALCITRIOL
  5. TRADJENTA [Concomitant]
     Active Substance: LINAGLIPTIN
  6. LENVATINIB [Suspect]
     Active Substance: LENVATINIB
     Dosage: BLINDED DOSAGE
     Route: 048
     Dates: start: 2018, end: 20180423
  7. MORPHINE [Concomitant]
     Active Substance: MORPHINE
  8. EVEROLIMUS. [Suspect]
     Active Substance: EVEROLIMUS
     Indication: RENAL CANCER
     Route: 048
     Dates: start: 20180301, end: 201803
  9. ASPIRIN. [Concomitant]
     Active Substance: ASPIRIN
  10. FAMOTIDINE. [Concomitant]
     Active Substance: FAMOTIDINE
  11. VENTOLIN HFA [Concomitant]
     Active Substance: ALBUTEROL SULFATE
  12. VITAMIN B12 [Concomitant]
     Active Substance: CYANOCOBALAMIN
  13. HYDRALAZINE [Concomitant]
     Active Substance: HYDRALAZINE HYDROCHLORIDE
  14. PRAVASTATINE [Concomitant]
     Active Substance: PRAVASTATIN
  15. MARINOL [Concomitant]
     Active Substance: DRONABINOL
  16. FUROSEMIDE. [Concomitant]
     Active Substance: FUROSEMIDE
  17. AMLODIPINE [Concomitant]
     Active Substance: AMLODIPINE BESYLATE
  18. TRESIBA [Concomitant]
     Active Substance: INSULIN DEGLUDEC

REACTIONS (6)
  - Troponin increased [Recovered/Resolved]
  - Lung infection [Recovered/Resolved]
  - Chest pain [Recovered/Resolved]
  - Mental status changes [Recovering/Resolving]
  - Hyperglycaemia [Recovering/Resolving]
  - Urinary tract infection [Unknown]

NARRATIVE: CASE EVENT DATE: 20180309
